FAERS Safety Report 14934778 (Version 1)
Quarter: 2018Q2

REPORT INFORMATION
  Report Type: Spontaneous
  Country: US (occurrence: US)
  Receive Date: 20180505
  Receipt Date: 20180505
  Transmission Date: 20180711
  Serious: Yes (Hospitalization)
  Sender: FDA-Public Use
  Company Number: None

PATIENT
  Age: 6 Year
  Sex: Female
  Weight: 20.4 kg

DRUGS (4)
  1. METHOTREXATE. [Suspect]
     Active Substance: METHOTREXATE
     Dates: end: 20180425
  2. MERCAPTOPURINE. [Suspect]
     Active Substance: MERCAPTOPURINE
     Dates: end: 20180503
  3. PREDNISONE. [Suspect]
     Active Substance: PREDNISONE
     Dates: end: 20180429
  4. VINCRISTINE SULFATE. [Suspect]
     Active Substance: VINCRISTINE SULFATE
     Dates: end: 20180425

REACTIONS (5)
  - Cough [None]
  - Ocular hyperaemia [None]
  - Eye discharge [None]
  - Neutrophil count abnormal [None]
  - Pyrexia [None]

NARRATIVE: CASE EVENT DATE: 20180504
